FAERS Safety Report 4360069-X (Version None)
Quarter: 2004Q2

REPORT INFORMATION
  Report Type: 
  Country: None (occurrence: None)
  Receive Date: 20040514
  Receipt Date: 20040505
  Transmission Date: 20050107
  Serious: Yes (Other)
  Sender: FDA-Public Use
  Company Number: 2004-04-0570

PATIENT
  Age: 27 Year
  Sex: Female
  Weight: 52 kg

DRUGS (1)
  1. CLARINEX D 24 HOUR [Suspect]
     Indication: RHINITIS
     Dosage: 1 TAB QD ORAL
     Route: 048
     Dates: start: 20040403, end: 20040406

REACTIONS (5)
  - ABORTION SPONTANEOUS [None]
  - COMPLICATIONS OF MATERNAL EXPOSURE TO THERAPEUTIC DRUGS [None]
  - INSOMNIA [None]
  - MATERNAL DRUGS AFFECTING FOETUS [None]
  - TACHYCARDIA [None]
